FAERS Safety Report 4599572-6 (Version None)
Quarter: 2005Q1

REPORT INFORMATION
  Report Type: 
  Country: None (occurrence: None)
  Receive Date: 20050303
  Receipt Date: 20050211
  Transmission Date: 20050727
  Serious: No
  Sender: FDA-Public Use
  Company Number: USA050290611

PATIENT
  Sex: Female

DRUGS (2)
  1. CYMBALTA [Suspect]
     Indication: DIABETIC NEUROPATHY
  2. CYMBALTA [Suspect]
     Indication: NEUROPATHIC PAIN

REACTIONS (1)
  - HEPATIC ENZYME INCREASED [None]
